FAERS Safety Report 7802970-8 (Version None)
Quarter: 2011Q4

REPORT INFORMATION
  Report Type: 
  Country: None (occurrence: None)
  Receive Date: 20111007
  Receipt Date: 20110926
  Transmission Date: 20120403
  Serious: Yes (Hospitalization)
  Sender: FDA-Public Use
  Company Number: US-BAYER-2011-028629

PATIENT
  Age: 18 Year
  Sex: Female

DRUGS (2)
  1. TYLENOL-500 [Concomitant]
     Dosage: 650 MG, UNK
     Route: 048
     Dates: start: 20080628
  2. YASMIN [Suspect]
     Indication: CONTRACEPTION
     Dosage: UNK
     Dates: start: 20080516, end: 20080628

REACTIONS (7)
  - DYSPNOEA [None]
  - CHEST PAIN [None]
  - PAIN [None]
  - PULMONARY EMBOLISM [None]
  - TACHYCARDIA [None]
  - THROMBOSIS [None]
  - INJURY [None]
